FAERS Safety Report 18834245 (Version 1)
Quarter: 2021Q1

REPORT INFORMATION
  Report Type: Spontaneous
  Country: US (occurrence: US)
  Receive Date: 20210203
  Receipt Date: 20210203
  Transmission Date: 20210419
  Serious: Yes (Other)
  Sender: FDA-Public Use
  Company Number: None

PATIENT
  Age: 76 Year
  Sex: Female

DRUGS (14)
  1. OXYCODONE [Concomitant]
     Active Substance: OXYCODONE
  2. MECLIZINE [Concomitant]
     Active Substance: MECLIZINE HYDROCHLORIDE
  3. DRONABINOL. [Concomitant]
     Active Substance: DRONABINOL
  4. HYDROCO/APAP [Concomitant]
     Active Substance: ACETAMINOPHEN\HYDROCODONE
  5. ONDANSETRON [Concomitant]
     Active Substance: ONDANSETRON
  6. LOPERAMIDE [Concomitant]
     Active Substance: LOPERAMIDE
  7. HUMIRA [Suspect]
     Active Substance: ADALIMUMAB
     Indication: COLITIS MICROSCOPIC
     Dosage: ?          OTHER FREQUENCY:EVERY 2 WEEKS;?
     Route: 058
     Dates: start: 20210119, end: 20210131
  8. METHOCARBAM [Concomitant]
     Active Substance: METHOCARBAMOL
  9. CALCITRIOL. [Concomitant]
     Active Substance: CALCITRIOL
  10. COLESTIPOL [Concomitant]
     Active Substance: COLESTIPOL
  11. ESTRADIOL. [Concomitant]
     Active Substance: ESTRADIOL
  12. PREDNISONE. [Concomitant]
     Active Substance: PREDNISONE
  13. DONEPEZIL. [Concomitant]
     Active Substance: DONEPEZIL
  14. LEVOTHYROXIN [Concomitant]
     Active Substance: LEVOTHYROXINE

REACTIONS (1)
  - Neoplasm malignant [None]

NARRATIVE: CASE EVENT DATE: 20210131
